FAERS Safety Report 6836428-X (Version None)
Quarter: 2010Q3

REPORT INFORMATION
  Report Type: 
  Country: None (occurrence: None)
  Receive Date: 20100713
  Receipt Date: 20100705
  Transmission Date: 20110219
  Serious: Yes (Hospitalization, Other)
  Sender: FDA-Public Use
  Company Number: JP-PFIZER INC-2010025796

PATIENT
  Age: 78 Year
  Sex: Male
  Weight: 53 kg

DRUGS (7)
  1. DOXAZOSIN MESYLATE [Suspect]
     Indication: HYPERTENSION
     Dosage: 2 MG/DAY
     Dates: start: 20100222, end: 20100225
  2. DOXAZOSIN MESYLATE [Suspect]
     Dosage: 0.5 MG/DAY
     Route: 048
     Dates: start: 20100125, end: 20100221
  3. ATELEC [Suspect]
     Dosage: 20 MG, DAILY
     Route: 048
     Dates: start: 20091207
  4. VALSARTAN [Concomitant]
     Dosage: 80 MG, DAILY
     Route: 048
     Dates: start: 20080115
  5. AMARYL [Concomitant]
     Dosage: 1 MG, DAILY
     Route: 048
  6. AMARYL [Concomitant]
     Dosage: 2 MG, DAILY
     Dates: start: 20080205
  7. FUROSEMIDE [Concomitant]
     Dosage: 40 MG, DAILY
     Route: 048
     Dates: start: 20091207

REACTIONS (5)
  - HYPOPROTEINAEMIA [None]
  - NEPHROTIC SYNDROME [None]
  - OEDEMA PERIPHERAL [None]
  - PENILE OEDEMA [None]
  - SCROTAL SWELLING [None]
